FAERS Safety Report 8071260-3 (Version None)
Quarter: 2012Q1

REPORT INFORMATION
  Report Type: 
  Country: None (occurrence: None)
  Receive Date: 20120125
  Receipt Date: 20120113
  Transmission Date: 20120608
  Serious: Yes (Hospitalization)
  Sender: FDA-Public Use
  Company Number: ES-PFIZER INC-2009274831

PATIENT
  Age: 60 Year
  Sex: Male
  Weight: 68 kg

DRUGS (10)
  1. PRIMPERAN TAB [Concomitant]
     Indication: NAUSEA
     Dosage: MG, AS NEEDED
     Route: 048
     Dates: start: 20090914
  2. DEXAMETHASONE [Concomitant]
     Indication: ALLERGY PROPHYLAXIS
     Dosage: 1 MG, 2X/DAY
     Route: 048
     Dates: start: 20090913, end: 20090917
  3. ONDANSETRON [Concomitant]
     Indication: VOMITING
     Dosage: 3 MG, 3X/DAY
     Route: 048
     Dates: start: 20090914, end: 20090917
  4. CARBOPLATIN [Suspect]
     Indication: NON-SMALL CELL LUNG CANCER
     Dosage: 714 MG, EVERY 3 WEEKS
     Route: 042
     Dates: start: 20090824, end: 20091021
  5. ERLOTINIB HYDROCHLORIDE [Suspect]
     Indication: NON-SMALL CELL LUNG CANCER
     Dosage: 150 MG, 1X/DAY
     Route: 048
     Dates: start: 20090824, end: 20091029
  6. LORAZEPAM [Concomitant]
     Indication: ANXIETY
     Dosage: 1 G, 3X/DAY
     Route: 048
     Dates: start: 20090824
  7. PARACETAMOL [Concomitant]
     Indication: PAIN
     Dosage: 1 G, 3X/DAY
     Route: 048
     Dates: start: 20090824
  8. PACLITAXEL [Suspect]
     Indication: NON-SMALL CELL LUNG CANCER
     Dosage: 360 MG, EVERY 3 WEEKS
     Route: 042
     Dates: start: 20090824, end: 20091021
  9. CP-751,871 [Suspect]
     Indication: NON-SMALL CELL LUNG CANCER
     Dosage: 1360 MG, EVERY 3 WEEKS
     Route: 042
     Dates: start: 20090825, end: 20091021
  10. OMEPRAZOLE [Concomitant]
     Indication: PROPHYLAXIS AGAINST GASTROINTESTINAL ULCER
     Dosage: 20 MG, 1X/DAY
     Route: 048
     Dates: start: 20090824

REACTIONS (4)
  - FEBRILE NEUTROPENIA [None]
  - DIARRHOEA [None]
  - EPISTAXIS [None]
  - MUCOSAL INFLAMMATION [None]
